FAERS Safety Report 5753986-7 (Version None)
Quarter: 2008Q2

REPORT INFORMATION
  Report Type: 
  Country: None (occurrence: None)
  Receive Date: 20080527
  Receipt Date: 20080512
  Transmission Date: 20081010
  Serious: Yes (Life-Threatening)
  Sender: FDA-Public Use
  Company Number: 2007-02925

PATIENT
  Age: 52 Year
  Sex: Male

DRUGS (4)
  1. VELCADE [Suspect]
     Indication: MULTIPLE MYELOMA
  2. VINCRISTINE [Suspect]
     Indication: MULTIPLE MYELOMA
     Dates: start: 20060529
  3. ADRIAMYCIN (DOXIRUBICIN) VIAL [Suspect]
     Indication: MULTIPLE MYELOMA
     Dates: start: 20060529
  4. DEXAMETHASONE TAB [Suspect]
     Indication: MULTIPLE MYELOMA
     Dates: start: 20060529

REACTIONS (9)
  - AGRANULOCYTOSIS [None]
  - APLASIA [None]
  - DISEASE PROGRESSION [None]
  - MUCOSAL INFLAMMATION [None]
  - ORAL HERPES [None]
  - PSEUDOMONAS INFECTION [None]
  - SEPTIC SHOCK [None]
  - STAPHYLOCOCCAL INFECTION [None]
  - THROMBOCYTOPENIA [None]
